FAERS Safety Report 23184092 (Version 2)
Quarter: 2023Q4

REPORT INFORMATION
  Report Type: Spontaneous
  Country: US (occurrence: US)
  Receive Date: 20231115
  Receipt Date: 20231212
  Transmission Date: 20240110
  Serious: No
  Sender: FDA-Public Use
  Company Number: US-ALKERMES INC.-ALK-2023-004305

PATIENT
  Sex: Male
  Weight: 71.202 kg

DRUGS (1)
  1. VIVITROL [Suspect]
     Active Substance: NALTREXONE
     Indication: Drug dependence
     Dosage: 380 MILLIGRAM, QMO
     Route: 030

REACTIONS (7)
  - Off label use [Not Recovered/Not Resolved]
  - Therapeutic response unexpected [Unknown]
  - Product administered by wrong person [Unknown]
  - Back pain [Unknown]
  - Injection site swelling [Unknown]
  - Arthralgia [Unknown]
  - Myalgia [Unknown]
